FAERS Safety Report 8830504 (Version 1)
Quarter: 2012Q4

REPORT INFORMATION
  Report Type: 
  Country: US (occurrence: US)
  Receive Date: 20121009
  Receipt Date: 20121009
  Transmission Date: 20130627
  Serious: Yes (Hospitalization)
  Sender: FDA-Public Use
  Company Number: US-ACTELION-A-US2012-64883

PATIENT
  Age: 67 Year
  Sex: Female

DRUGS (1)
  1. TRACLEER [Suspect]
     Indication: PULMONARY ARTERIAL HYPERTENSION
     Dosage: UNK
     Route: 048
     Dates: start: 20110922

REACTIONS (7)
  - Blood pressure fluctuation [Unknown]
  - Dehydration [Unknown]
  - Abdominal discomfort [Unknown]
  - Malaise [Unknown]
  - Somnolence [Unknown]
  - Blood pressure increased [Unknown]
  - Fatigue [Unknown]
